FAERS Safety Report 5105383-5 (Version None)
Quarter: 2006Q3

REPORT INFORMATION
  Report Type: 
  Country: None (occurrence: None)
  Receive Date: 20060915
  Receipt Date: 20060328
  Transmission Date: 20061208
  Serious: Yes (Other)
  Sender: FDA-Public Use
  Company Number: FRWYE515529MAR06

PATIENT
  Sex: Female

DRUGS (5)
  1. ENBREL [Suspect]
     Indication: RHEUMATOID ARTHRITIS
     Route: 058
     Dates: start: 20050104, end: 20060501
  2. ENBREL [Suspect]
     Route: 058
     Dates: start: 20050622, end: 20060501
  3. MOBIC [Concomitant]
     Route: 048
     Dates: start: 20031201, end: 20050330
  4. VOLTAREN [Concomitant]
     Route: 048
     Dates: start: 20050330, end: 20050622
  5. BI-PROFENID [Concomitant]
     Dosage: 2 TABLETS TOTAL DIALY
     Route: 048
     Dates: start: 20050622

REACTIONS (6)
  - AMNESIA [None]
  - CEREBROVASCULAR DISORDER [None]
  - DISTURBANCE IN ATTENTION [None]
  - DYSLEXIA [None]
  - SOMNOLENCE [None]
  - VISUAL BRIGHTNESS [None]
